FAERS Safety Report 9494522 (Version 6)
Quarter: 2015Q3

REPORT INFORMATION
  Report Type: Spontaneous
  Country: US (occurrence: US)
  Receive Date: 20130903
  Receipt Date: 20150720
  Transmission Date: 20151125
  Serious: Yes (Hospitalization, Other)
  Sender: FDA-Public Use
  Company Number: US-PFIZER INC-2013252317

PATIENT
  Age: 76 Year
  Sex: Female
  Weight: 93 kg

DRUGS (25)
  1. LYRICA [Suspect]
     Active Substance: PREGABALIN
     Indication: FIBROMYALGIA
     Dosage: 150 MG, 3X/DAY
     Route: 048
     Dates: start: 2008
  2. OCUVITE [Concomitant]
     Active Substance: VITAMINS
     Dosage: UNK, 1X/DAY
  3. INSULIN [Concomitant]
     Active Substance: INSULIN NOS
     Indication: TYPE 2 DIABETES MELLITUS
     Dosage: UNK
  4. METFORMIN [Concomitant]
     Active Substance: METFORMIN HYDROCHLORIDE
     Dosage: 2 DF, 2X/DAY
  5. LYRICA [Suspect]
     Active Substance: PREGABALIN
     Indication: DIABETIC NEUROPATHY
     Dosage: 150 MG, 3X/DAY
     Route: 048
  6. HUMULIN N [Concomitant]
     Active Substance: INSULIN HUMAN
     Indication: DIABETES MELLITUS
     Dosage: 31 UNITS IN THE MORNING AND 25 UNITS IN THE EVENING
  7. FUROSEMIDE. [Concomitant]
     Active Substance: FUROSEMIDE
     Dosage: 40 MG, AS NEEDED
     Route: 048
     Dates: start: 20150420
  8. GLIPIZIDE. [Concomitant]
     Active Substance: GLIPIZIDE
     Dosage: 2.5 MG, 1X/DAY (AT LUNCH )
     Route: 048
     Dates: start: 20150420
  9. COLCRYS [Concomitant]
     Active Substance: COLCHICINE
     Dosage: 0.6 MG, UNK (2 (TWO) TABLET (ORAL) NOW, AND ONE TABLET ONE HOUR LATER, THEN AS NEEDED)
     Route: 048
     Dates: start: 20141112
  10. LYRICA [Suspect]
     Active Substance: PREGABALIN
     Dosage: 150 MG, 2X/DAY
     Route: 048
     Dates: end: 2014
  11. METFORMIN [Concomitant]
     Active Substance: METFORMIN HYDROCHLORIDE
     Dosage: 500 MG, UNK (2 (TWO) AT DINNER FOR 90 DAYS)
     Route: 048
     Dates: start: 20150623
  12. BIOTIN [Concomitant]
     Active Substance: BIOTIN
     Dosage: 1000 ?G, 1X/DAY
     Route: 048
  13. VITAMINS [Concomitant]
     Active Substance: VITAMINS
     Dosage: UNK
  14. TIZANIDINE. [Concomitant]
     Active Substance: TIZANIDINE
     Indication: MUSCLE RELAXANT THERAPY
     Dosage: 40 MG, 3X/DAY
  15. HUMULIN N [Concomitant]
     Active Substance: INSULIN HUMAN
     Dosage: UNK (26 UNITS IN THE AM,20 UNITS IN THE PM )
     Route: 058
     Dates: start: 20150420
  16. LEVOTHYROXINE. [Concomitant]
     Active Substance: LEVOTHYROXINE
     Indication: THYROID DISORDER
     Dosage: 50 UG, 1X/DAY
     Route: 048
     Dates: start: 20150420
  17. ATENOLOL/CHLORTHALIDONE [Concomitant]
     Active Substance: ATENOLOL\CHLORTHALIDONE
     Dosage: 40MG/25MG ONCE A DAY
  18. ATENOLOL. [Concomitant]
     Active Substance: ATENOLOL
     Dosage: 50 MG, 1X/DAY
     Route: 048
     Dates: start: 20150420
  19. LISINOPRIL. [Concomitant]
     Active Substance: LISINOPRIL
     Indication: HYPERTENSION
     Dosage: 40 MG, 1X/DAY
     Route: 048
     Dates: start: 20150420
  20. METANX [Concomitant]
     Active Substance: LEVOMEFOLATE CALCIUM\METHYLCOBALAMIN\PYRIDOXAL PHOSPHATE ANHYDROUS
     Dosage: UNK
  21. BABY ASPIRIN [Concomitant]
     Active Substance: ASPIRIN
     Dosage: UNK, 1X/DAY
  22. TIZANIDINE. [Concomitant]
     Active Substance: TIZANIDINE
     Dosage: 4 MG, 3X/DAY
     Route: 048
     Dates: start: 20150420
  23. HUMULIN N [Concomitant]
     Active Substance: INSULIN HUMAN
     Dosage: 25-26 UNITS IN MORNING AND 20 UNITS IN EVENING
  24. AMOXICILLIN. [Concomitant]
     Active Substance: AMOXICILLIN
     Dosage: 500 MG, UNK (FOUR ONE HOUR PRIOR TO DENTAL PROCEDURES FOR 1 DAY )
     Route: 048
     Dates: start: 20131218
  25. XARELTO [Concomitant]
     Active Substance: RIVAROXABAN
     Dosage: 20 MG, 1X/DAY
     Route: 048
     Dates: start: 20150420

REACTIONS (13)
  - Thrombosis [Recovered/Resolved]
  - Pain in extremity [Unknown]
  - Thrombosis [Unknown]
  - Thrombosis [Unknown]
  - Muscle spasms [Unknown]
  - Groin pain [Not Recovered/Not Resolved]
  - Pain [Unknown]
  - Insomnia [Unknown]
  - Gout [Unknown]
  - Fibromyalgia [Unknown]
  - Myalgia [Unknown]
  - Condition aggravated [Unknown]
  - Paranoia [Unknown]

NARRATIVE: CASE EVENT DATE: 2013
